FAERS Safety Report 7011952 (Version 3)
Quarter: 2020Q2

REPORT INFORMATION
  Report Type: Spontaneous
  Country: IN (occurrence: IN)
  Receive Date: 20090605
  Receipt Date: 20200428
  Transmission Date: 20200714
  Serious: Yes (Hospitalization, Other)
  Sender: FDA-Public Use
  Company Number: IN-BAYER-200921894GPV

PATIENT
  Age: 23 Year
  Sex: Male

DRUGS (3)
  1. CIPROFLOXACIN. [Suspect]
     Active Substance: CIPROFLOXACIN
     Indication: RESPIRATORY TRACT INFECTION
     Route: 048
  2. CHLORAMPHENICOL [Concomitant]
     Active Substance: CHLORAMPHENICOL
     Indication: PYREXIA
     Route: 051
  3. CHLORAMPHENICOL [Concomitant]
     Active Substance: CHLORAMPHENICOL
     Indication: TYPHOID FEVER

REACTIONS (10)
  - Musculoskeletal stiffness [Recovered/Resolved]
  - Posturing [Recovered/Resolved]
  - Catatonia [Recovered/Resolved]
  - Somnolence [Recovered/Resolved]
  - Unresponsive to stimuli [Recovered/Resolved]
  - Waxy flexibility [Recovered/Resolved]
  - Lethargy [Recovered/Resolved]
  - Mutism [Recovered/Resolved]
  - Disturbance in attention [Recovered/Resolved]
  - Muscle rigidity [Recovered/Resolved]
